FAERS Safety Report 5164413-5 (Version None)
Quarter: 2006Q4

REPORT INFORMATION
  Report Type: 
  Country: None (occurrence: None)
  Receive Date: 20061127
  Receipt Date: 20061127
  Transmission Date: 20070319
  Serious: Yes (Hospitalization)
  Sender: FDA-Public Use
  Company Number: None

PATIENT
  Age: 85 Year
  Sex: Male
  Weight: 90 kg

DRUGS (15)
  1. CYCLOPHOSPHAMIDE [Suspect]
     Indication: NON-SMALL CELL LUNG CANCER STAGE IV
     Dosage: 465 MG IV TIMES ONE
     Route: 042
     Dates: start: 20061106
  2. ALLOGENEIC LUNG CA /CD 40L VACCINE - SEE APPENDIX 1 [Suspect]
     Indication: METASTASES TO LIVER
     Dosage: SEE APPENDIX 1
  3. ALLOGENEIC LUNG CA /CD 40L VACCINE - SEE APPENDIX 1 [Suspect]
     Indication: NON-SMALL CELL LUNG CANCER STAGE IV
     Dosage: SEE APPENDIX 1
  4. ALL-TRANS RETONIC ACID ( ATRA) [Suspect]
     Indication: METASTASES TO LIVER
     Dosage: SEE APPENDIX 1
  5. ASPIRIN [Concomitant]
  6. AVODART [Concomitant]
  7. BENICAR [Concomitant]
  8. DIOVAN [Concomitant]
  9. FLOMAX [Concomitant]
  10. MEGACE [Concomitant]
  11. NEXIUM [Concomitant]
  12. NORVASC [Concomitant]
  13. OXYCONTIN [Concomitant]
  14. VICODON 5/500 [Concomitant]
  15. ZOCOR [Concomitant]

REACTIONS (26)
  - ABASIA [None]
  - ASTHENIA [None]
  - ATRIOVENTRICULAR BLOCK FIRST DEGREE [None]
  - BLOOD BICARBONATE DECREASED [None]
  - BLOOD CALCIUM DECREASED [None]
  - BLOOD POTASSIUM DECREASED [None]
  - BLOOD PRESSURE SYSTOLIC DECREASED [None]
  - DEHYDRATION [None]
  - DRUG HYPERSENSITIVITY [None]
  - DYSPHAGIA [None]
  - DYSPNOEA [None]
  - FATIGUE [None]
  - HAEMOGLOBIN DECREASED [None]
  - HEART RATE INCREASED [None]
  - HYPOTENSION [None]
  - LUNG CONSOLIDATION [None]
  - OXYGEN SATURATION DECREASED [None]
  - PNEUMONIA [None]
  - PO2 DECREASED [None]
  - RECALL PHENOMENON [None]
  - RENAL FAILURE [None]
  - RESPIRATORY RATE INCREASED [None]
  - RETINOIC ACID SYNDROME [None]
  - SEPSIS SYNDROME [None]
  - SINUS TACHYCARDIA [None]
  - VACCINATION COMPLICATION [None]
